FAERS Safety Report 21622067 (Version 2)
Quarter: 2022Q4

REPORT INFORMATION
  Report Type: Report from Study
  Country: US (occurrence: US)
  Receive Date: 20221121
  Receipt Date: 20221215
  Transmission Date: 20230113
  Serious: No
  Sender: FDA-Public Use
  Company Number: US-ABBVIE-4205623

PATIENT
  Sex: Female

DRUGS (1)
  1. VENCLEXTA [Suspect]
     Active Substance: VENETOCLAX
     Indication: Chronic lymphocytic leukaemia
     Dosage: 2022 WAS CONSIDERED AS DRUG END DATE. THE START DATE OF EVENT WAS TAKEN AS 2022.
     Route: 048
     Dates: start: 202206

REACTIONS (1)
  - COVID-19 [Unknown]
